FAERS Safety Report 20289058 (Version 1)
Quarter: 2022Q1

REPORT INFORMATION
  Report Type: Spontaneous
  Country: US (occurrence: US)
  Receive Date: 20220104
  Receipt Date: 20220104
  Transmission Date: 20220424
  Serious: Yes (Hospitalization, Other)
  Sender: FDA-Public Use
  Company Number: US-PIRAMAL PHARMA LIMITED-2021-PEL-000956

PATIENT

DRUGS (5)
  1. GABLOFEN [Suspect]
     Active Substance: BACLOFEN
     Indication: Muscle spasticity
     Dosage: 1151 MICROGRAM PER DAY
     Route: 037
  2. GABLOFEN [Suspect]
     Active Substance: BACLOFEN
     Indication: Head injury
  3. GABLOFEN [Suspect]
     Active Substance: BACLOFEN
     Indication: Brain injury
  4. RITALIN [Concomitant]
     Active Substance: METHYLPHENIDATE HYDROCHLORIDE
     Indication: Product used for unknown indication
     Dosage: UNK
     Route: 065
  5. INSULIN                            /00646001/ [Concomitant]
     Indication: Blood glucose abnormal
     Dosage: UNK
     Route: 065

REACTIONS (9)
  - Fall [Unknown]
  - Seizure [Unknown]
  - Polyuria [Unknown]
  - Urine ketone body [Unknown]
  - Balance disorder [Unknown]
  - Device infusion issue [Recovered/Resolved]
  - Asthenia [Unknown]
  - Dry mouth [Unknown]
  - Muscle spasms [Unknown]

NARRATIVE: CASE EVENT DATE: 20210624
